FAERS Safety Report 10016740 (Version 1)
Quarter: 2014Q1

REPORT INFORMATION
  Report Type: Spontaneous
  Country: US (occurrence: US)
  Receive Date: 20140318
  Receipt Date: 20140318
  Transmission Date: 20141002
  Serious: Yes (Hospitalization)
  Sender: FDA-Public Use
  Company Number: PHEH2014US005127

PATIENT
  Sex: Female

DRUGS (8)
  1. EXELON PATCH [Suspect]
     Dosage: LOWER DOSE
     Route: 062
  2. EXELON PATCH [Suspect]
     Dosage: 9.5 UKN, UNK
     Route: 062
  3. METOPROLOL [Concomitant]
     Dosage: UNK UKN, UNK
  4. LASIX [Concomitant]
     Dosage: UNK UKN, UNK
  5. POTASSIUM [Concomitant]
     Dosage: UNK UKN, UNK
  6. ASPIRIN [Concomitant]
     Dosage: UNK UKN, UNK
  7. MULTIVIT//VITAMINS NOS [Concomitant]
     Dosage: UNK UKN, UNK
  8. HERBAL EXTRACT NOS [Concomitant]
     Dosage: UNK UKN, UNK

REACTIONS (8)
  - Pneumonia [Unknown]
  - Loss of consciousness [Unknown]
  - Cardiac failure congestive [Unknown]
  - Cardiac valve disease [Unknown]
  - Incontinence [Unknown]
  - Fatigue [Unknown]
  - Weight decreased [Unknown]
  - Application site erythema [Unknown]
